FAERS Safety Report 6819022-6 (Version None)
Quarter: 2010Q3

REPORT INFORMATION
  Report Type: 
  Country: None (occurrence: None)
  Receive Date: 20100707
  Receipt Date: 20100622
  Transmission Date: 20110219
  Serious: Yes (Other)
  Sender: FDA-Public Use
  Company Number: GB-SOLVAY-00210004069

PATIENT
  Age: 68 Year
  Sex: Male
  Weight: 70 kg

DRUGS (2)
  1. ATORVASTATIN [Suspect]
     Indication: HYPERLIPIDAEMIA
     Dosage: DAILY DOSE: 10 MILLIGRAM(S)
     Route: 048
     Dates: start: 20000101, end: 20090601
  2. PERINDOPRIL ERBUMINE [Suspect]
     Indication: HYPERTENSION
     Dosage: DAILY DOSE: 2 MILLIGRAM(S)
     Route: 048
     Dates: start: 20000101, end: 20100601

REACTIONS (1)
  - BLOOD CREATINE PHOSPHOKINASE INCREASED [None]
